FAERS Safety Report 5341608-9 (Version None)
Quarter: 2007Q2

REPORT INFORMATION
  Report Type: 
  Country: None (occurrence: None)
  Receive Date: 20070530
  Receipt Date: 20070523
  Transmission Date: 20071010
  Serious: Yes (Death, Hospitalization)
  Sender: FDA-Public Use
  Company Number: WAES 0705FRA00002

PATIENT
  Age: 58 Year
  Sex: Male

DRUGS (14)
  1. CAP VORINOSTAT 300 MG [Suspect]
     Indication: NON-SMALL CELL LUNG CANCER
     Dosage: 300 MG DAILY PO
     Route: 048
     Dates: start: 20070410, end: 20070416
  2. CAP VORINOSTAT 300 MG [Suspect]
     Indication: NON-SMALL CELL LUNG CANCER
     Dosage: 300 MG DAILY PO
     Route: 048
     Dates: start: 20070430, end: 20070506
  3. INJ GEMCITABINE UNK [Suspect]
     Indication: NON-SMALL CELL LUNG CANCER
     Dosage: 1790 MG DAILY IV
     Route: 042
     Dates: start: 20070412, end: 20070412
  4. INJ GEMCITABINE UNK [Suspect]
     Indication: NON-SMALL CELL LUNG CANCER
     Dosage: 1790 MG DAILY IV
     Route: 042
     Dates: start: 20070420, end: 20070420
  5. INJ GEMCITABINE UNK [Suspect]
     Indication: NON-SMALL CELL LUNG CANCER
     Dosage: 1790 MG DAILY IV
     Route: 042
     Dates: start: 20070502, end: 20070502
  6. INJ CISPLATIN UNK [Suspect]
     Indication: NON-SMALL CELL LUNG CANCER
     Dosage: 134 MG DAILY IV
     Route: 042
     Dates: start: 20070412, end: 20070412
  7. INJ CISPLATIN UNK [Suspect]
     Indication: NON-SMALL CELL LUNG CANCER
     Dosage: 134 MG DAILY IV
     Route: 042
     Dates: start: 20070502, end: 20070502
  8. EMEND [Concomitant]
  9. METHYLPREDNISOLONE 16MG TAB [Concomitant]
  10. METOCLOPRAMIDE HYDROCHLORIDE [Concomitant]
  11. NIACINAMIDE [Concomitant]
  12. ONDANSETRON HCL [Concomitant]
  13. OXAZEPAM [Concomitant]
  14. PREDNISOLOLNE SODIUM METASULFOBEN [Concomitant]

REACTIONS (5)
  - ANAEMIA [None]
  - ANOREXIA [None]
  - ASTHENIA [None]
  - HAEMORRHAGE [None]
  - PYREXIA [None]
